FAERS Safety Report 15230323 (Version 1)
Quarter: 2018Q3

REPORT INFORMATION
  Report Type: Spontaneous
  Country: FR (occurrence: FR)
  Receive Date: 20180802
  Receipt Date: 20180802
  Transmission Date: 20181010
  Serious: Yes (Death)
  Sender: FDA-Public Use
  Company Number: FR-CONCORDIA PHARMACEUTICALS INC.-E2B_00015147

PATIENT
  Age: 74 Year
  Sex: Male

DRUGS (1)
  1. DIGOXIN. [Suspect]
     Active Substance: DIGOXIN
     Indication: ATRIAL FIBRILLATION
     Route: 048
     Dates: start: 20140106, end: 20140117

REACTIONS (2)
  - Arrhythmia [Fatal]
  - Confusional state [Fatal]

NARRATIVE: CASE EVENT DATE: 20140117
